FAERS Safety Report 5337570-5 (Version None)
Quarter: 2007Q1

REPORT INFORMATION
  Report Type: 
  Country: None (occurrence: None)
  Receive Date: 20070309
  Receipt Date: 20060221
  Transmission Date: 20070707
  Serious: Yes (Other)
  Sender: FDA-Public Use
  Company Number: US200602004261

PATIENT
  Age: 62 Year
  Sex: Female

DRUGS (1)
  1. GEMZAR [Suspect]
     Indication: OVARIAN CANCER
     Dosage: 1000 MG/M2, INTRAVENOUS
     Route: 042
     Dates: start: 20051220, end: 20060201

REACTIONS (3)
  - ABDOMINAL DISTENSION [None]
  - ASCITES [None]
  - GENERALISED OEDEMA [None]
